FAERS Safety Report 6342674-4 (Version None)
Quarter: 2009Q3

REPORT INFORMATION
  Report Type: 
  Country: None (occurrence: None)
  Receive Date: 20090908
  Receipt Date: 20070223
  Transmission Date: 20100115
  Serious: No
  Sender: FDA-Public Use
  Company Number: GR-ROCHE-482388

PATIENT
  Sex: Female
  Weight: 62.2 kg

DRUGS (1)
  1. TAMIFLU [Suspect]
     Indication: DRUG USE FOR UNKNOWN INDICATION
     Route: 048
     Dates: start: 20070101

REACTIONS (2)
  - ABORTION INDUCED [None]
  - DRUG EXPOSURE DURING PREGNANCY [None]
